FAERS Safety Report 23950677 (Version 1)
Quarter: 2024Q2

REPORT INFORMATION
  Report Type: Report from Study
  Country: US (occurrence: US)
  Receive Date: 20240607
  Receipt Date: 20240607
  Transmission Date: 20240716
  Serious: No
  Sender: FDA-Public Use
  Company Number: US-SPRINGWORKS THERAPEUTICS-SW-001380

PATIENT
  Age: 57 Year
  Sex: Female

DRUGS (2)
  1. NIROGACESTAT [Suspect]
     Active Substance: NIROGACESTAT
     Indication: Product used for unknown indication
     Dosage: 150 MILLIGRAM, BID
     Dates: start: 20240212, end: 20240306
  2. NIROGACESTAT [Suspect]
     Active Substance: NIROGACESTAT
     Dosage: 150 MILLIGRAM, BID

REACTIONS (4)
  - Fungal infection [Recovering/Resolving]
  - Hormone level abnormal [Recovering/Resolving]
  - Product dose omission issue [Recovering/Resolving]
  - Product supply issue [Recovering/Resolving]

NARRATIVE: CASE EVENT DATE: 20240302
